FAERS Safety Report 7037408-4 (Version None)
Quarter: 2010Q4

REPORT INFORMATION
  Report Type: 
  Country: None (occurrence: None)
  Receive Date: 20101011
  Receipt Date: 20101001
  Transmission Date: 20110411
  Serious: Yes (Hospitalization)
  Sender: FDA-Public Use
  Company Number: FR-PFIZER INC-2010126593

PATIENT
  Age: 43 Year
  Sex: Male

DRUGS (10)
  1. ATARAX [Suspect]
     Dosage: 200 MG, DAILY
     Route: 048
  2. SOLIAN [Suspect]
     Indication: PSYCHOTIC DISORDER
     Dosage: 12 ML DAILY
     Route: 048
     Dates: end: 20100701
  3. LOXAPAC [Suspect]
     Indication: PSYCHOTIC DISORDER
     Dosage: 500 ORAL DROPS, UNK
     Route: 048
  4. CLOPIXOL (DECANOATE) [Suspect]
     Indication: PSYCHOTIC DISORDER
     Dosage: 150 ORAL DROP,
     Route: 048
  5. DEPAKOTE [Suspect]
     Dosage: 2500 MG DAILY
     Route: 048
  6. NOCTAMID [Suspect]
     Dosage: 2 MG, DAILY
     Route: 048
  7. LEPTICUR [Suspect]
     Dosage: 20 MG, DAILY
     Route: 048
  8. RIVOTRIL [Suspect]
     Dosage: 110 ORAL DROPS
     Route: 048
  9. FORLAX [Concomitant]
  10. LEVOTHYROXINE SODIUM [Concomitant]

REACTIONS (2)
  - HYPOGLYCAEMIA [None]
  - PANCREATIC ISLETS HYPERPLASIA [None]
